FAERS Safety Report 5384668-1 (Version None)
Quarter: 2007Q3

REPORT INFORMATION
  Report Type: 
  Country: None (occurrence: None)
  Receive Date: 20070710
  Receipt Date: 20070322
  Transmission Date: 20080115
  Serious: Yes (Hospitalization, Other)
  Sender: FDA-Public Use
  Company Number: 2007-00803

PATIENT
  Age: 56 Year
  Sex: Female
  Weight: 71.7 kg

DRUGS (6)
  1. VELCADE [Suspect]
     Indication: MULTIPLE MYELOMA
     Dosage: 1.30 MG/M2 , INTRAVENOUS
     Route: 042
     Dates: start: 20070305, end: 20070315
  2. ADVAIR DISKUS 100/50 [Concomitant]
  3. COUMADIN [Concomitant]
  4. ANZEMET [Concomitant]
  5. CALCIUM GLUCONATE [Concomitant]
  6. CALCITONIN (CALCITONIN) [Concomitant]

REACTIONS (2)
  - ANAEMIA [None]
  - DEAFNESS NEUROSENSORY [None]
